FAERS Safety Report 13900733 (Version 1)
Quarter: 2017Q3

REPORT INFORMATION
  Report Type: Spontaneous
  Country: HR (occurrence: HR)
  Receive Date: 20170824
  Receipt Date: 20170824
  Transmission Date: 20171127
  Serious: Yes (Other)
  Sender: FDA-Public Use
  Company Number: HR-TEVA-798042ACC

PATIENT
  Age: 70 Year
  Sex: Female
  Weight: 110 kg

DRUGS (6)
  1. CADUET [Concomitant]
     Active Substance: AMLODIPINE BESYLATE\ATORVASTATIN CALCIUM
     Indication: ESSENTIAL HYPERTENSION
     Dosage: 1 DOSAGE FORMS DAILY;
     Route: 048
     Dates: start: 2014
  2. CONCOR COR [Concomitant]
     Active Substance: BISOPROLOL FUMARATE
     Indication: ESSENTIAL HYPERTENSION
     Dosage: 1.25 MILLIGRAM DAILY;
     Route: 048
  3. DETRALEX [Concomitant]
     Active Substance: DIOSMIN\HESPERIDIN
     Dosage: 2 DOSAGE FORMS DAILY;
     Route: 048
  4. KLAVOCIN DT [Suspect]
     Active Substance: AMOXICILLIN\CLAVULANATE POTASSIUM
     Indication: SKIN INFECTION
     Dosage: 2 DOSAGE FORMS DAILY;
     Route: 048
     Dates: start: 20170426, end: 20170426
  5. CO PERINEVA [Concomitant]
     Active Substance: INDAPAMIDE\PERINDOPRIL ERBUMINE
     Indication: ESSENTIAL HYPERTENSION
     Dosage: 1 DOSAGE FORMS DAILY;
     Route: 048
     Dates: start: 2014
  6. EUTHYROX [Concomitant]
     Active Substance: LEVOTHYROXINE SODIUM
     Indication: HYPERTHYROIDISM
     Dosage: 125 MICROGRAM DAILY;
     Route: 048
     Dates: start: 201702

REACTIONS (4)
  - Rash [Recovering/Resolving]
  - Eyelid oedema [Recovering/Resolving]
  - Swelling [Recovering/Resolving]
  - Swelling face [Recovering/Resolving]

NARRATIVE: CASE EVENT DATE: 20170426
